FAERS Safety Report 18090599 (Version 1)
Quarter: 2020Q3

REPORT INFORMATION
  Report Type: Spontaneous
  Country: GB (occurrence: GB)
  Receive Date: 20200730
  Receipt Date: 20200730
  Transmission Date: 20201103
  Serious: Yes (Disabling, Other)
  Sender: FDA-Public Use
  Company Number: GB-TEVA-2020-GB-1806309

PATIENT
  Age: 57 Year
  Sex: Female
  Weight: 95 kg

DRUGS (11)
  1. PARACETAMOL DC [Concomitant]
  2. CODEINE PHOSPHATE [Concomitant]
     Active Substance: CODEINE PHOSPHATE
  3. CIPROFLOXACIN HYDROCHLORIDE. [Suspect]
     Active Substance: CIPROFLOXACIN HYDROCHLORIDE
     Indication: OTITIS MEDIA
     Route: 048
     Dates: start: 20200429, end: 20200506
  4. PREDNISOLONE. [Concomitant]
     Active Substance: PREDNISOLONE
  5. AMLODIPINE [Concomitant]
     Active Substance: AMLODIPINE BESYLATE
  6. VITAMIN D3 10000 IU/G [Concomitant]
  7. DULOXETINE HYDROCHLORIDE. [Concomitant]
     Active Substance: DULOXETINE HYDROCHLORIDE
  8. LISINOPRIL ANHYDROUS [Concomitant]
     Active Substance: LISINOPRIL
  9. MST CONTINUS [Concomitant]
     Active Substance: MORPHINE SULFATE
  10. COLCHICINE. [Concomitant]
     Active Substance: COLCHICINE
  11. DIAZEPAM. [Concomitant]
     Active Substance: DIAZEPAM

REACTIONS (3)
  - Tendon pain [Unknown]
  - Tendonitis [Unknown]
  - Tendon rupture [Not Recovered/Not Resolved]

NARRATIVE: CASE EVENT DATE: 20200507
